FAERS Safety Report 6647175-1 (Version None)
Quarter: 2010Q1

REPORT INFORMATION
  Report Type: 
  Country: None (occurrence: None)
  Receive Date: 20100323
  Receipt Date: 20100309
  Transmission Date: 20100710
  Serious: Yes (Hospitalization, Other)
  Sender: FDA-Public Use
  Company Number: US-TYCO HEALTHCARE/MALLINCKRODT-T200901852

PATIENT
  Sex: Male

DRUGS (30)
  1. OPTIMARK [Suspect]
     Indication: NUCLEAR MAGNETIC RESONANCE IMAGING
     Dosage: 10 ML, SINGLE
     Dates: start: 20040707, end: 20040707
  2. OPTIMARK [Suspect]
     Dosage: 10 ML, SINGLE
     Dates: start: 20040714, end: 20040714
  3. OPTIMARK [Suspect]
     Indication: NUCLEAR MAGNETIC RESONANCE IMAGING BRAIN
     Dosage: 10 ML, SINGLE
     Dates: start: 20051129, end: 20051129
  4. OPTIMARK [Suspect]
     Dosage: 10 ML, SINGLE
     Dates: start: 20051201, end: 20051201
  5. OPTIMARK [Suspect]
     Dosage: 10 ML, SINGLE
     Dates: start: 20060404, end: 20060404
  6. OPTIMARK [Suspect]
     Dosage: 10 ML, SINGLE
     Dates: start: 20060406, end: 20060406
  7. OPTIMARK [Suspect]
     Dosage: 15 ML, SINGLE
     Dates: start: 20061215, end: 20061215
  8. OMNISCAN [Suspect]
     Indication: NUCLEAR MAGNETIC RESONANCE IMAGING
     Dosage: UNK
     Dates: start: 20030502, end: 20030502
  9. GADOLINIUM [Suspect]
     Indication: NUCLEAR MAGNETIC RESONANCE IMAGING
     Dosage: UNK
     Dates: start: 19930528, end: 19930528
  10. GADOLINIUM [Suspect]
     Dosage: UNK
     Dates: start: 19950804
  11. GADOLINIUM [Suspect]
     Dosage: UNK
     Dates: start: 19960410
  12. GADOLINIUM [Suspect]
     Dosage: UNK
     Dates: start: 19970326, end: 19970326
  13. GADOLINIUM [Suspect]
     Dosage: UNK
     Dates: start: 19970709, end: 19970709
  14. GADOLINIUM [Suspect]
     Dosage: UNK
     Dates: start: 20010829, end: 20010829
  15. GADOLINIUM [Suspect]
     Dosage: UNK
     Dates: start: 20050712
  16. GADOLINIUM [Suspect]
     Dosage: UNK
     Dates: start: 20050714
  17. ERYTHROPOETIN [Concomitant]
  18. NIFEREX                            /01214501/ [Concomitant]
  19. PRILOSEC [Concomitant]
  20. HEPARIN [Concomitant]
  21. COLCHICINE [Concomitant]
  22. ZYLOPRIM [Concomitant]
  23. NEURONTIN [Concomitant]
  24. ELAVIL [Concomitant]
  25. COUMADIN [Concomitant]
  26. MIDODRINE HYDROCHLORIDE [Concomitant]
  27. DILTIAZEM HCL [Concomitant]
  28. FLOVENT [Concomitant]
  29. SEREVENT [Concomitant]
  30. RENAGEL                            /01459901/ [Concomitant]

REACTIONS (9)
  - CHEST PAIN [None]
  - CORONARY ARTERY DISEASE [None]
  - DYSPNOEA [None]
  - GANGRENE [None]
  - HEPATIC CYST [None]
  - NEPHROGENIC SYSTEMIC FIBROSIS [None]
  - OFF LABEL USE [None]
  - ORTHOSTATIC HYPOTENSION [None]
  - SPLENOMEGALY [None]
